FAERS Safety Report 14991271 (Version 2)
Quarter: 2018Q4

REPORT INFORMATION
  Report Type: Spontaneous
  Country: ZA (occurrence: ZA)
  Receive Date: 20180608
  Receipt Date: 20181128
  Transmission Date: 20190204
  Serious: Yes (Other)
  Sender: FDA-Public Use
  Company Number: ZA-SA-2018SA143515

PATIENT
  Age: 54 Year
  Sex: Female

DRUGS (5)
  1. METHOTREXATE. [Suspect]
     Active Substance: METHOTREXATE
  2. MYCIN [BENZATHINE BENZYLPENICILLIN] [Suspect]
     Active Substance: PENICILLIN G BENZATHINE
     Dosage: 5 MG, QD
     Dates: start: 201601
  3. ENBREL [Suspect]
     Active Substance: ETANERCEPT
     Dosage: 50 MG, QW
     Route: 058
  4. CHLOROQUINE. [Suspect]
     Active Substance: CHLOROQUINE
     Dosage: 200 MG, QD
     Dates: start: 2013
  5. SALAZOPYRIN [Suspect]
     Active Substance: SULFASALAZINE
     Dosage: 1 G, BID
     Dates: start: 2013

REACTIONS (2)
  - Rheumatoid arthritis [Unknown]
  - Gastritis [Unknown]

NARRATIVE: CASE EVENT DATE: 2015
